FAERS Safety Report 4301800-9 (Version None)
Quarter: 2004Q1

REPORT INFORMATION
  Report Type: 
  Country: None (occurrence: None)
  Receive Date: 20040126
  Receipt Date: 20031002
  Transmission Date: 20041129
  Serious: No
  Sender: FDA-Public Use
  Company Number: USA031048916

PATIENT
  Age: 53 Year
  Sex: Female
  Weight: 64 kg

DRUGS (5)
  1. PROZAC [Suspect]
     Indication: DEPRESSION
     Dosage: 40 MG/ IN THE MORNING
     Dates: start: 19950101
  2. STRATTERA [Suspect]
     Indication: ATTENTION DEFICIT/HYPERACTIVITY DISORDER
     Dosage: 20 MG/IN THE MORNING
     Dates: start: 20030927
  3. TRAZODONE HCL [Concomitant]
  4. LEVOTHROID [Concomitant]
  5. ZOLOFT [Concomitant]

REACTIONS (16)
  - ABNORMAL DREAMS [None]
  - BLOOD PRESSURE DECREASED [None]
  - DISTURBANCE IN ATTENTION [None]
  - DRUG DEPENDENCE [None]
  - FEELING ABNORMAL [None]
  - HANGOVER [None]
  - HEADACHE [None]
  - HYPERACUSIS [None]
  - MIDDLE INSOMNIA [None]
  - NAUSEA [None]
  - NERVOUSNESS [None]
  - PSYCHOMOTOR HYPERACTIVITY [None]
  - RAPID EYE MOVEMENTS SLEEP ABNORMAL [None]
  - SLEEP DISORDER [None]
  - SOMNOLENCE [None]
  - TINNITUS [None]
